FAERS Safety Report 4358737-9 (Version None)
Quarter: 2004Q2

REPORT INFORMATION
  Report Type: 
  Country: None (occurrence: None)
  Receive Date: 20040514
  Receipt Date: 20040514
  Transmission Date: 20050107
  Serious: No
  Sender: FDA-Public Use
  Company Number: None

PATIENT
  Age: 40 Year
  Sex: Male
  Weight: 81.6475 kg

DRUGS (5)
  1. FUZEON [Suspect]
     Indication: HIV INFECTION
     Dosage: 90 MG SQ Q 12 HR
     Route: 058
  2. ABACAVIR [Concomitant]
  3. ATAZANAVIR [Concomitant]
  4. RITONAVIR [Concomitant]
  5. DIDANOSINE [Concomitant]

REACTIONS (3)
  - FEELING ABNORMAL [None]
  - HEADACHE [None]
  - VISUAL DISTURBANCE [None]
